FAERS Safety Report 10949354 (Version 1)
Quarter: 2015Q1

REPORT INFORMATION
  Report Type: Spontaneous
  Country: US (occurrence: None)
  Receive Date: 20150323
  Receipt Date: 20150323
  Transmission Date: 20150721
  Serious: Yes (Disabling)
  Sender: FDA-Public Use
  Company Number: None

PATIENT
  Age: 43 Year
  Sex: Female
  Weight: 68.04 kg

DRUGS (3)
  1. LAMOTRIGINE. [Concomitant]
     Active Substance: LAMOTRIGINE
  2. DOXEPIN [Suspect]
     Active Substance: DOXEPIN
     Indication: BIPOLAR II DISORDER
     Dosage: 1 PILL
     Route: 048
     Dates: start: 20150313, end: 20150320
  3. DOXEPIN [Suspect]
     Active Substance: DOXEPIN
     Indication: POST-TRAUMATIC STRESS DISORDER
     Dosage: 1 PILL
     Route: 048
     Dates: start: 20150313, end: 20150320

REACTIONS (4)
  - Abnormal dreams [None]
  - Stupor [None]
  - Nightmare [None]
  - Paranoia [None]

NARRATIVE: CASE EVENT DATE: 20150318
